FAERS Safety Report 9324573 (Version 1)
Quarter: 2013Q2

REPORT INFORMATION
  Report Type: Spontaneous
  Country: US (occurrence: US)
  Receive Date: 20130603
  Receipt Date: 20130603
  Transmission Date: 20140414
  Serious: No
  Sender: FDA-Public Use
  Company Number: US-009507513-1305USA015848

PATIENT
  Age: 88 Year
  Sex: Female
  Weight: 43.84 kg

DRUGS (2)
  1. CLARITIN-D 12 HOUR [Suspect]
     Indication: HYPERSENSITIVITY
     Dosage: UNK, Q12H
     Route: 048
     Dates: start: 20130508
  2. TRAMADOL HYDROCHLORIDE [Concomitant]
     Indication: FALL
     Dosage: UNK, UNKNOWN
     Dates: start: 2013

REACTIONS (2)
  - Mental status changes [Not Recovered/Not Resolved]
  - Incoherent [Not Recovered/Not Resolved]
